FAERS Safety Report 6059320-X (Version None)
Quarter: 2009Q1

REPORT INFORMATION
  Report Type: 
  Country: None (occurrence: None)
  Receive Date: 20090130
  Receipt Date: 20090120
  Transmission Date: 20090719
  Serious: Yes (Life-Threatening)
  Sender: FDA-Public Use
  Company Number: US-ABBOTT-07P-163-0373470-01

PATIENT
  Sex: Male
  Weight: 114.5 kg

DRUGS (2)
  1. HUMIRA [Suspect]
     Indication: RHEUMATOID ARTHRITIS
     Route: 058
     Dates: start: 20030603, end: 20070702
  2. METHOTREXATE [Concomitant]
     Indication: RHEUMATOID ARTHRITIS
     Route: 048
     Dates: start: 20070213, end: 20070702

REACTIONS (2)
  - NON-SMALL CELL LUNG CANCER STAGE IV [None]
  - RENAL MASS [None]
